FAERS Safety Report 8379433-7 (Version None)
Quarter: 2012Q2

REPORT INFORMATION
  Report Type: 
  Country: None (occurrence: None)
  Receive Date: 20120523
  Receipt Date: 20120514
  Transmission Date: 20120825
  Serious: Yes (Hospitalization)
  Sender: FDA-Public Use
  Company Number: EG-SANOFI-AVENTIS-2012SA034714

PATIENT
  Age: 49 Year
  Sex: Male

DRUGS (3)
  1. LANTUS [Suspect]
     Dosage: DOSE:40 UNIT(S)
     Route: 058
  2. LANTUS [Suspect]
     Indication: TYPE 2 DIABETES MELLITUS
     Dosage: DOSE:25 UNIT(S)
     Route: 058
     Dates: start: 20090816
  3. LANTUS [Suspect]
     Dosage: DOSE:50 UNIT(S)
     Route: 058
     Dates: end: 20120314

REACTIONS (3)
  - CATHETER PLACEMENT [None]
  - CARDIAC DISORDER [None]
  - HYPERGLYCAEMIA [None]
